FAERS Safety Report 10423037 (Version 1)
Quarter: 2014Q3

REPORT INFORMATION
  Report Type: Spontaneous
  Country: US (occurrence: US)
  Receive Date: 20140902
  Receipt Date: 20140902
  Transmission Date: 20150326
  Serious: Yes (Hospitalization, Other)
  Sender: FDA-Public Use
  Company Number: US-AMGEN-USASP2014066141

PATIENT
  Age: 79 Year
  Sex: Female

DRUGS (1)
  1. PROLIA [Suspect]
     Active Substance: DENOSUMAB
     Indication: OSTEOPOROSIS POSTMENOPAUSAL
     Dosage: UNK
     Route: 065
     Dates: start: 20140102

REACTIONS (15)
  - Fall [Unknown]
  - Nausea [Unknown]
  - Loss of consciousness [Unknown]
  - Diabetes mellitus [Unknown]
  - Dyspepsia [Unknown]
  - Dry skin [Unknown]
  - Blood sodium decreased [Unknown]
  - Gait disturbance [Unknown]
  - Malaise [Unknown]
  - Kidney infection [Unknown]
  - Dizziness [Not Recovered/Not Resolved]
  - Cutaneous lupus erythematosus [Not Recovered/Not Resolved]
  - Weight decreased [Unknown]
  - Hypertension [Unknown]
  - Decreased appetite [Not Recovered/Not Resolved]

NARRATIVE: CASE EVENT DATE: 2014
